FAERS Safety Report 8395272-5 (Version None)
Quarter: 2012Q2

REPORT INFORMATION
  Report Type: 
  Country: None (occurrence: None)
  Receive Date: 20120530
  Receipt Date: 20120523
  Transmission Date: 20120825
  Serious: Yes (Life-Threatening, Hospitalization, Other)
  Sender: FDA-Public Use
  Company Number: PHEH2012US005564

PATIENT
  Sex: Female

DRUGS (1)
  1. GILENYA [Suspect]
     Indication: MULTIPLE SCLEROSIS
     Dosage: 0.5 MG, QD
     Route: 048
     Dates: start: 20110501, end: 20120301

REACTIONS (9)
  - SKIN PAPILLOMA [None]
  - ORAL HERPES [None]
  - FATIGUE [None]
  - SQUAMOUS CELL CARCINOMA OF SKIN [None]
  - CARPAL TUNNEL SYNDROME [None]
  - RESTLESS LEGS SYNDROME [None]
  - TREMOR [None]
  - PRURITUS [None]
  - MELANOCYTIC NAEVUS [None]
